FAERS Safety Report 7032446-X (Version None)
Quarter: 2010Q4

REPORT INFORMATION
  Report Type: 
  Country: None (occurrence: None)
  Receive Date: 20101007
  Receipt Date: 20100222
  Transmission Date: 20110411
  Serious: Yes (Life-Threatening)
  Sender: FDA-Public Use
  Company Number: TW-BRISTOL-MYERS SQUIBB COMPANY-14963763

PATIENT
  Age: 41 Year
  Sex: Male
  Weight: 63 kg

DRUGS (4)
  1. CETUXIMAB [Suspect]
     Indication: COLORECTAL CANCER METASTATIC
     Dosage: FORMULATION:5MG/ML;RECENT INFUSION :500MG PER M2 ON 08JAN10 TEMPORARILY DISCONTINUED ON 25JAN10.
     Route: 042
     Dates: start: 20091024, end: 20100125
  2. OXALIPLATIN [Suspect]
     Indication: COLORECTAL CANCER METASTATIC
     Dosage: RECENT DOSE 08JAN10 100MG/M2 ,TEMPORARILY DISCONTINUED ON 25JAN10.
     Route: 042
     Dates: start: 20091024, end: 20100125
  3. FLUOROURACIL [Suspect]
     Indication: COLORECTAL CANCER METASTATIC
     Dosage: RECENT INFUSION:08JAN10,TEMP DISCONT ON 25JAN10. 400MG/M2 BOLUS,2400MG/M2 46 HRS INF (2800 MG/M2 )
     Route: 042
     Dates: start: 20091024, end: 20100125
  4. FOLINIC ACID [Suspect]
     Indication: COLORECTAL CANCER METASTATIC
     Dosage: RECENT DOSE 08JAN10 400MG/M2,TEMPORARILY DISCONTINUED ON 25JAN10.
     Route: 042
     Dates: start: 20091024, end: 20100125

REACTIONS (1)
  - HEPATIC FUNCTION ABNORMAL [None]
